FAERS Safety Report 23450058 (Version 1)
Quarter: 2024Q1

REPORT INFORMATION
  Report Type: Spontaneous
  Country: US (occurrence: US)
  Receive Date: 20240129
  Receipt Date: 20240129
  Transmission Date: 20240409
  Serious: Yes (Hospitalization, Other)
  Sender: FDA-Public Use
  Company Number: US-SPC-000367

PATIENT
  Age: 48 Year
  Sex: Male

DRUGS (5)
  1. METRONIDAZOLE [Suspect]
     Active Substance: METRONIDAZOLE
     Indication: Sepsis
     Route: 048
     Dates: start: 202308, end: 202308
  2. VANCOMYCIN [Suspect]
     Active Substance: VANCOMYCIN
     Indication: Sepsis
     Route: 042
     Dates: start: 202308, end: 202308
  3. CEFTRIAXONE [Suspect]
     Active Substance: CEFTRIAXONE\CEFTRIAXONE SODIUM
     Indication: Sepsis
     Route: 042
     Dates: start: 202308, end: 202308
  4. METOCLOPRAMIDE [Concomitant]
     Active Substance: METOCLOPRAMIDE
     Indication: Nausea
     Dosage: PRN
     Route: 042
     Dates: start: 202308, end: 202308
  5. METOCLOPRAMIDE [Concomitant]
     Active Substance: METOCLOPRAMIDE
     Indication: Vomiting
     Dosage: PRN
     Route: 042

REACTIONS (3)
  - Pneumonia [Recovered/Resolved]
  - Therapeutic product effect incomplete [Unknown]
  - Product use in unapproved indication [Unknown]
